FAERS Safety Report 10143206 (Version 2)
Quarter: 2014Q2

REPORT INFORMATION
  Report Type: Spontaneous
  Country: US (occurrence: US)
  Receive Date: 20140430
  Receipt Date: 20140616
  Transmission Date: 20141212
  Serious: Yes (Hospitalization, Other)
  Sender: FDA-Public Use
  Company Number: US-JNJFOC-20140418000

PATIENT
  Sex: Female
  Weight: 99.79 kg

DRUGS (10)
  1. REMICADE [Suspect]
     Indication: ANKYLOSING SPONDYLITIS
     Route: 042
     Dates: start: 201010
  2. REMICADE [Suspect]
     Indication: ANKYLOSING SPONDYLITIS
     Route: 042
     Dates: start: 20140225
  3. VERAPAMIL [Concomitant]
     Indication: HYPERTENSION
     Route: 048
     Dates: start: 2012
  4. VERAPAMIL [Concomitant]
     Indication: ATRIAL FIBRILLATION
     Route: 048
     Dates: start: 2012
  5. LEVOTHYROXINE [Concomitant]
     Indication: THYROID DISORDER
     Dosage: 50MCG,  IT CAME OUT
     Route: 048
  6. LOVASTATIN [Concomitant]
     Indication: BLOOD CHOLESTEROL
     Dosage: 50MCG
     Route: 048
     Dates: start: 1998
  7. WARFARIN [Concomitant]
     Indication: CARDIAC DISORDER
     Dosage: T5 MG, 2.5MG/WEEKLY
     Route: 048
     Dates: start: 2009
  8. WARFARIN [Concomitant]
     Indication: KNEE ARTHROPLASTY
     Dosage: T5 MG, 2.5MG/WEEKLY
     Route: 048
     Dates: start: 2009
  9. DIGOXIN [Concomitant]
     Indication: CARDIAC DISORDER
     Dosage: UNSURE HOW??LONG SHE HAS BEEN ON DIGOXIN
     Route: 048
  10. OXYCODONE [Concomitant]
     Indication: PAIN
     Route: 065

REACTIONS (10)
  - Large intestine perforation [Recovered/Resolved]
  - Weight decreased [Not Recovered/Not Resolved]
  - Bursitis [Not Recovered/Not Resolved]
  - Localised infection [Recovered/Resolved]
  - Blood pressure decreased [Unknown]
  - Blood pressure fluctuation [Not Recovered/Not Resolved]
  - Muscle spasms [Unknown]
  - Musculoskeletal pain [Not Recovered/Not Resolved]
  - Neck pain [Not Recovered/Not Resolved]
  - Infusion related reaction [Not Recovered/Not Resolved]
